FAERS Safety Report 5484614-6 (Version None)
Quarter: 2007Q4

REPORT INFORMATION
  Report Type: 
  Country: None (occurrence: None)
  Receive Date: 20071012
  Receipt Date: 20071002
  Transmission Date: 20080405
  Serious: Yes (Death, Hospitalization, Disabling, Other)
  Sender: FDA-Public Use
  Company Number: GB-PFIZER INC-2007079916

PATIENT
  Age: 25 Year
  Sex: Male

DRUGS (6)
  1. EPIRUBICIN HYDROCHLORIDE [Suspect]
     Indication: SARCOMA
     Dates: start: 20010601, end: 20010801
  2. CISPLATIN [Suspect]
     Indication: SARCOMA
     Dates: start: 19980401, end: 20010801
  3. DACARBAZINE [Suspect]
     Indication: SARCOMA
     Dates: start: 20010601, end: 20010801
  4. IFOSFAMIDE [Suspect]
     Indication: SARCOMA
     Dosage: TEXT:3.33 G/M^2-FREQ:CYCLIC: DAY 1-4
     Dates: start: 19980401, end: 20011101
  5. VINBLASTINE SULFATE [Suspect]
     Indication: SARCOMA
     Dates: start: 20010601, end: 20010801
  6. DOXORUBICIN HCL [Concomitant]
     Dates: start: 19980401, end: 19980701

REACTIONS (4)
  - DISEASE PROGRESSION [None]
  - FANCONI SYNDROME [None]
  - OSTEOMALACIA [None]
  - SARCOMA [None]
